FAERS Safety Report 16063973 (Version 12)
Quarter: 2021Q1

REPORT INFORMATION
  Report Type: Spontaneous
  Country: IN (occurrence: IN)
  Receive Date: 20190312
  Receipt Date: 20210113
  Transmission Date: 20210419
  Serious: Yes (Other)
  Sender: FDA-Public Use
  Company Number: IN-PFIZER INC-2019103410

PATIENT
  Age: 46 Year
  Sex: Female
  Weight: 55 kg

DRUGS (5)
  1. FEMPRO [Concomitant]
     Active Substance: LETROZOLE
     Dosage: 2.5 MG, 1X/DAY
     Route: 048
  2. PALBACE [Suspect]
     Active Substance: PALBOCICLIB
     Indication: BREAST CANCER METASTATIC
     Dosage: 125 MG, CYCLIC (D1?21 Q28D )
     Route: 048
     Dates: start: 20171115
  3. ZOLASTA [Concomitant]
     Dosage: 4 MG, UNK
  4. DULOXETINE. [Concomitant]
     Active Substance: DULOXETINE
     Dosage: 30 MG, 2X/DAY
  5. SHELCAL HD [Concomitant]
     Active Substance: CALCIUM CARBONATE\CHOLECALCIFEROL
     Dosage: UNK, 1X/DAY (HD)
     Route: 048

REACTIONS (14)
  - Haematocrit decreased [Unknown]
  - Creatinine renal clearance decreased [Unknown]
  - Lymphoedema [Not Recovered/Not Resolved]
  - Red cell distribution width increased [Unknown]
  - Cough [Unknown]
  - Neuropathy peripheral [Unknown]
  - White blood cell count decreased [Unknown]
  - Red blood cell count decreased [Unknown]
  - Platelet count decreased [Unknown]
  - Mean cell volume increased [Unknown]
  - Heart rate increased [Unknown]
  - Burning sensation [Unknown]
  - Neutrophil count decreased [Unknown]
  - Blood pressure increased [Unknown]

NARRATIVE: CASE EVENT DATE: 20171129
